FAERS Safety Report 4658730-2 (Version None)
Quarter: 2005Q2

REPORT INFORMATION
  Report Type: 
  Country: None (occurrence: None)
  Receive Date: 20050509
  Receipt Date: 20050502
  Transmission Date: 20051028
  Serious: Yes (Hospitalization)
  Sender: FDA-Public Use
  Company Number: 22533

PATIENT
  Age: 77 Year
  Sex: Male
  Weight: 102.0593 kg

DRUGS (3)
  1. NIASPAN [Suspect]
     Indication: BLOOD CHOLESTEROL INCREASED
     Dosage: 1000 MG QHS PO
     Route: 048
     Dates: start: 20030101
  2. PHENOBARBITAL [Concomitant]
  3. VITAMINS [Concomitant]

REACTIONS (1)
  - TACHYCARDIA [None]
